FAERS Safety Report 6443842-3 (Version None)
Quarter: 2009Q4

REPORT INFORMATION
  Report Type: 
  Country: None (occurrence: None)
  Receive Date: 20091113
  Receipt Date: 20091029
  Transmission Date: 20100525
  Serious: Yes (Hospitalization)
  Sender: FDA-Public Use
  Company Number: 2009003317

PATIENT
  Age: 43 Year
  Sex: Female

DRUGS (6)
  1. ERLOTINIB HYDROCHLORIDE [Suspect]
     Indication: NON-SMALL CELL LUNG CANCER
     Dosage: (QD),ORAL
     Route: 048
     Dates: start: 20090821
  2. GEMCITABINE [Suspect]
     Indication: NON-SMALL CELL LUNG CANCER
     Dosage: (1790 MG),INTRAVENOUS
     Route: 042
     Dates: start: 20090807
  3. CARBOPLATIN [Suspect]
     Indication: NON-SMALL CELL LUNG CANCER
     Dosage: (450 MG),INTRAVENOUS
     Route: 042
     Dates: start: 20090807
  4. DEXTROPROPOXYPHENE(DEXTROPROPOXYPHENE) [Concomitant]
  5. ENOXAPARIN SODIUM [Concomitant]
  6. SYNALAR (FLUOCINOLONE ACETATE) [Concomitant]

REACTIONS (1)
  - CONFUSIONAL STATE [None]
